FAERS Safety Report 19764326 (Version 1)
Quarter: 2021Q3

REPORT INFORMATION
  Report Type: Spontaneous
  Country: DE (occurrence: DE)
  Receive Date: 20210830
  Receipt Date: 20210830
  Transmission Date: 20211014
  Serious: Yes (Hospitalization, Other)
  Sender: FDA-Public Use
  Company Number: DE-MYLANLABS-2021M1056124

PATIENT
  Age: 73 Year
  Sex: Male

DRUGS (12)
  1. VALSACOR [Suspect]
     Active Substance: VALSARTAN
     Indication: PRODUCT USED FOR UNKNOWN INDICATION
     Dosage: 1 DF (1 TABLET) (1?0?0?0)
     Route: 065
  2. ALLOPURINOL HEXAL [Suspect]
     Active Substance: ALLOPURINOL
     Indication: PRODUCT USED FOR UNKNOWN INDICATION
     Dosage: 1 DF (1 TABLET) (1?0?0?0)
     Route: 065
  3. PIPERACILLIN/TAZOBACTAM [Suspect]
     Active Substance: PIPERACILLIN SODIUM\TAZOBACTAM SODIUM
     Indication: PRODUCT USED FOR UNKNOWN INDICATION
     Dosage: 1 DF (1?1?1?0)
     Route: 065
  4. METFORMIN HEXAL [Suspect]
     Active Substance: METFORMIN HYDROCHLORIDE
     Indication: PRODUCT USED FOR UNKNOWN INDICATION
     Dosage: 1 DF (1 TABLET) (1?0?1?0)
     Route: 065
  5. ALDACTONE [Suspect]
     Active Substance: SPIRONOLACTONE
     Indication: PRODUCT USED FOR UNKNOWN INDICATION
     Dosage: 1 DF (1 TABLET) (1?0?0?0)
     Route: 065
  6. BISOPROLOL RATIOPHARM [Suspect]
     Active Substance: BISOPROLOL
     Indication: PRODUCT USED FOR UNKNOWN INDICATION
     Dosage: 1 DF (1 TABLET) (1?0?0?0)
     Route: 065
  7. SIMVAHEXAL [Suspect]
     Active Substance: SIMVASTATIN
     Indication: PRODUCT USED FOR UNKNOWN INDICATION
     Dosage: 1 DF (1 TABLET) (0?0?1?0)
     Route: 065
  8. PANTOPRAZOLE [Suspect]
     Active Substance: PANTOPRAZOLE
     Indication: PRODUCT USED FOR UNKNOWN INDICATION
     Dosage: 1 DF (1 TABLET) (1?0?0?0)
     Route: 065
  9. ICLUSIG [Suspect]
     Active Substance: PONATINIB
     Indication: PRODUCT USED FOR UNKNOWN INDICATION
     Dosage: 1 DF (1 TABLET) (0?1?0?0)
     Route: 065
  10. MOVICOL [Suspect]
     Active Substance: POLYETHYLENE GLYCOL 3350\POTASSIUM CHLORIDE\SODIUM BICARBONATE\SODIUM CHLORIDE
     Indication: PRODUCT USED FOR UNKNOWN INDICATION
     Dosage: UNK (1 SACHET) (1?1?1?0)
     Route: 065
  11. TORASEMID HEXAL [Suspect]
     Active Substance: TORSEMIDE
     Indication: PRODUCT USED FOR UNKNOWN INDICATION
     Dosage: 1 DF (1 TABLET) (1?0?0?0)
     Route: 065
  12. BIFITERAL [Suspect]
     Active Substance: LACTULOSE
     Indication: PRODUCT USED FOR UNKNOWN INDICATION
     Dosage: 1 ML (1?1?1?0) (STRENGTH 667 G/L)
     Route: 065

REACTIONS (31)
  - Pneumonia [Unknown]
  - Osteochondrosis [Unknown]
  - Activated partial thromboplastin time prolonged [Unknown]
  - Activated partial thromboplastin time shortened [Unknown]
  - Adrenal adenoma [Unknown]
  - Hypoventilation [Unknown]
  - Red cell distribution width increased [Not Recovered/Not Resolved]
  - Constipation [Recovering/Resolving]
  - Abdominal pain [Unknown]
  - Nephrocalcinosis [Unknown]
  - Pancreatitis [Unknown]
  - Diverticulitis [Unknown]
  - Periarthritis calcarea [Unknown]
  - Lymphocyte count decreased [Unknown]
  - Haemoglobin decreased [Not Recovered/Not Resolved]
  - Lipase increased [Unknown]
  - Immature granulocyte count increased [Unknown]
  - Red blood cell count decreased [Not Recovered/Not Resolved]
  - Adrenal cyst [Unknown]
  - Benign prostatic hyperplasia [Unknown]
  - Inguinal hernia [Unknown]
  - Hypertension [Unknown]
  - Articular calcification [Unknown]
  - Chest pain [Unknown]
  - Haematocrit decreased [Not Recovered/Not Resolved]
  - Type 2 diabetes mellitus [Unknown]
  - International normalised ratio increased [Unknown]
  - Bronchiectasis [Unknown]
  - Interstitial lung disease [Unknown]
  - C-reactive protein increased [Unknown]
  - Renal cyst [Unknown]

NARRATIVE: CASE EVENT DATE: 20200622
